FAERS Safety Report 21732922 (Version 3)
Quarter: 2023Q1

REPORT INFORMATION
  Report Type: Report from Study
  Country: CZ (occurrence: CZ)
  Receive Date: 20221215
  Receipt Date: 20230110
  Transmission Date: 20230418
  Serious: Yes (Other)
  Sender: FDA-Public Use
  Company Number: CZ-ABBVIE-4237743

PATIENT
  Age: 71 Year
  Sex: Male

DRUGS (10)
  1. HUMIRA [Suspect]
     Active Substance: ADALIMUMAB
     Indication: Ankylosing spondylitis
     Route: 058
     Dates: start: 20190923, end: 20221107
  2. PANTOPRAZOLE SODIUM [Concomitant]
     Active Substance: PANTOPRAZOLE SODIUM
     Indication: Dyspepsia
     Route: 048
  3. ALLOPURINOL [Concomitant]
     Active Substance: ALLOPURINOL
     Indication: Hyperuricaemia
     Route: 048
  4. Zenon [Concomitant]
     Indication: Hyperlipidaemia
     Dosage: 10/40 MG
     Route: 048
  5. DESLORATADINE [Concomitant]
     Active Substance: DESLORATADINE
     Indication: Urticaria
     Route: 048
  6. ACETAMINOPHEN\TRAMADOL HYDROCHLORIDE [Concomitant]
     Active Substance: ACETAMINOPHEN\TRAMADOL HYDROCHLORIDE
     Indication: Pain
     Dosage: 75/650 MG
     Route: 048
  7. INDAPAMIDE\PERINDOPRIL ARGININE [Concomitant]
     Active Substance: INDAPAMIDE\PERINDOPRIL ARGININE
     Indication: Hypertension
     Dosage: 5/1.25 MG
     Route: 048
  8. TAMSULOSIN HYDROCHLORIDE [Concomitant]
     Active Substance: TAMSULOSIN HYDROCHLORIDE
     Indication: Water vapour thermal therapy
     Route: 048
  9. Betaloc, Zok [Concomitant]
     Indication: Hypertension
     Route: 048
  10. ASPIRIN\GLYCINE [Concomitant]
     Active Substance: ASPIRIN\GLYCINE
     Indication: Product used for unknown indication
     Route: 048

REACTIONS (5)
  - Rectal adenocarcinoma [Not Recovered/Not Resolved]
  - Gastrointestinal tract adenoma [Unknown]
  - Intestinal obstruction [Not Recovered/Not Resolved]
  - Unevaluable event [Unknown]
  - Mass [Unknown]

NARRATIVE: CASE EVENT DATE: 20220501
